FAERS Safety Report 6873685-8 (Version None)
Quarter: 2010Q3

REPORT INFORMATION
  Report Type: 
  Country: None (occurrence: None)
  Receive Date: 20100723
  Receipt Date: 20090218
  Transmission Date: 20110219
  Serious: No
  Sender: FDA-Public Use
  Company Number: US-PFIZER INC-2009174954

PATIENT
  Sex: Female
  Weight: 104.32 kg

DRUGS (6)
  1. CHANTIX [Suspect]
     Indication: SMOKING CESSATION THERAPY
     Dosage: 0.5 MG, 2X/DAY
     Route: 048
     Dates: start: 20090201
  2. LIPITOR [Concomitant]
     Dosage: UNK
     Route: 048
  3. PREVACID [Concomitant]
     Dosage: UNK
     Route: 048
  4. LISINOPRIL [Concomitant]
     Dosage: UNK
     Route: 048
  5. FLUOXETINE [Concomitant]
     Dosage: UNK
     Route: 048
  6. SERTRALINE [Concomitant]
     Dosage: UNK
     Route: 048

REACTIONS (1)
  - NAUSEA [None]
